FAERS Safety Report 10812309 (Version 1)
Quarter: 2015Q1

REPORT INFORMATION
  Report Type: Report from Study
  Country: BR (occurrence: BR)
  Receive Date: 20150218
  Receipt Date: 20150218
  Transmission Date: 20150721
  Serious: Yes (Other)
  Sender: FDA-Public Use
  Company Number: BR-BRISTOL-MYERS SQUIBB COMPANY-BMS-2015-007502

PATIENT

DRUGS (1)
  1. ABATACEPT [Suspect]
     Active Substance: ABATACEPT
     Indication: RHEUMATOID ARTHRITIS
     Route: 042

REACTIONS (1)
  - Toe operation [Recovered/Resolved]

NARRATIVE: CASE EVENT DATE: 20141212
